FAERS Safety Report 8173983-4 (Version None)
Quarter: 2012Q1

REPORT INFORMATION
  Report Type: 
  Country: None (occurrence: None)
  Receive Date: 20120229
  Receipt Date: 20120223
  Transmission Date: 20120608
  Serious: Yes (Other)
  Sender: FDA-Public Use
  Company Number: IT-ROCHE-1042925

PATIENT
  Sex: Male

DRUGS (1)
  1. ROCEPHIN [Suspect]
     Indication: PYREXIA
     Route: 030
     Dates: start: 20120109, end: 20120109

REACTIONS (1)
  - SYNCOPE [None]
